FAERS Safety Report 6277457-7 (Version None)
Quarter: 2009Q3

REPORT INFORMATION
  Report Type: 
  Country: None (occurrence: None)
  Receive Date: 20090722
  Receipt Date: 20090721
  Transmission Date: 20100115
  Serious: Yes (Other)
  Sender: FDA-Public Use
  Company Number: US-PFIZER INC-2009224059

PATIENT
  Sex: Male

DRUGS (3)
  1. DILANTIN-125 [Suspect]
     Indication: CONVULSION
     Dosage: 300 MG, 2X/DAY
     Dates: start: 19970101, end: 20060101
  2. DILANTIN-125 [Suspect]
     Dosage: UNK
     Dates: start: 20060101, end: 20070101
  3. DILANTIN-125 [Suspect]
     Dosage: UNK
     Dates: start: 20070101, end: 20090604

REACTIONS (13)
  - ANTICONVULSANT DRUG LEVEL INCREASED [None]
  - CONVULSION [None]
  - DIZZINESS [None]
  - DRUG DOSE OMISSION [None]
  - FALL [None]
  - FOOT FRACTURE [None]
  - GAIT DISTURBANCE [None]
  - INCORRECT DOSE ADMINISTERED [None]
  - IRRITABILITY [None]
  - MENINGIOMA [None]
  - NEOPLASM RECURRENCE [None]
  - SOMNOLENCE [None]
  - TREMOR [None]
